FAERS Safety Report 8291933-7 (Version None)
Quarter: 2012Q2

REPORT INFORMATION
  Report Type: 
  Country: None (occurrence: None)
  Receive Date: 20120417
  Receipt Date: 20110314
  Transmission Date: 20120825
  Serious: No
  Sender: FDA-Public Use
  Company Number: US-ASTRAZENECA-2011SE14578

PATIENT
  Sex: Female

DRUGS (2)
  1. ZANTAC [Concomitant]
  2. NEXIUM [Suspect]
     Route: 048

REACTIONS (6)
  - PAIN IN EXTREMITY [None]
  - BRONCHITIS [None]
  - FIBROMYALGIA [None]
  - ABDOMINAL PAIN UPPER [None]
  - OSTEOARTHRITIS [None]
  - GASTROOESOPHAGEAL REFLUX DISEASE [None]
